FAERS Safety Report 25348097 (Version 1)
Quarter: 2025Q2

REPORT INFORMATION
  Report Type: Spontaneous
  Country: US (occurrence: None)
  Receive Date: 20250520
  Receipt Date: 20250520
  Transmission Date: 20250716
  Serious: Yes (Life-Threatening, Hospitalization, Disabling, Other)
  Sender: FDA-CTU
  Company Number: None

PATIENT
  Age: 57 Year
  Sex: Female
  Weight: 72.57 kg

DRUGS (1)
  1. ZILRETTA [Suspect]
     Active Substance: TRIAMCINOLONE ACETONIDE
     Indication: Arthralgia
     Dosage: OTHER STRENGTH : ONE TIME INJECTION;?FREQUENCY : DAILY;?
     Dates: start: 20240110, end: 20240110

REACTIONS (11)
  - Hypertension [None]
  - Blood glucose increased [None]
  - Cerebrovascular accident [None]
  - Cerebral atrophy [None]
  - Cerebral small vessel ischaemic disease [None]
  - Thrombosis [None]
  - Epistaxis [None]
  - Intracranial pressure increased [None]
  - Aneurysm [None]
  - Cerebellar density decreased [None]
  - Pituitary tumour benign [None]

NARRATIVE: CASE EVENT DATE: 20240110
